FAERS Safety Report 21135588 (Version 2)
Quarter: 2022Q3

REPORT INFORMATION
  Report Type: Spontaneous
  Country: US (occurrence: US)
  Receive Date: 20220727
  Receipt Date: 20220904
  Transmission Date: 20221026
  Serious: Yes (Hospitalization, Other)
  Sender: FDA-Public Use
  Company Number: US-BRISTOL-MYERS SQUIBB COMPANY-2022-074380

PATIENT
  Age: 57 Year
  Sex: Male
  Weight: 114.9 kg

DRUGS (11)
  1. ROMIDEPSIN [Suspect]
     Active Substance: ROMIDEPSIN
     Indication: Stem cell transplant
     Dosage: FREQUENCY: 4 DOSES
     Route: 042
     Dates: start: 20220223, end: 20220226
  2. FLUDARABINA [FLUDARABINE] [Concomitant]
     Indication: Product used for unknown indication
     Route: 065
     Dates: start: 20220223, end: 20220226
  3. BUSULFAN [Concomitant]
     Active Substance: BUSULFAN
     Indication: Product used for unknown indication
     Route: 065
     Dates: start: 20220223, end: 20220226
  4. TACROLIMUS [Concomitant]
     Active Substance: TACROLIMUS
     Indication: Product used for unknown indication
     Route: 065
     Dates: start: 20220227
  5. METHOTREXATE [Concomitant]
     Active Substance: METHOTREXATE
     Indication: Product used for unknown indication
     Route: 065
     Dates: start: 20220302, end: 20220312
  6. ACYCLOVIR [Concomitant]
     Active Substance: ACYCLOVIR
     Indication: Prophylaxis
     Route: 065
  7. CRESEMBA [Concomitant]
     Active Substance: ISAVUCONAZONIUM SULFATE
     Indication: Prophylaxis
     Route: 065
  8. DAPSONE [Concomitant]
     Active Substance: DAPSONE
     Indication: Prophylaxis
     Route: 065
  9. SIROLIMUS [Concomitant]
     Active Substance: SIROLIMUS
     Indication: Graft versus host disease
     Route: 065
  10. JAKAFI [Concomitant]
     Active Substance: RUXOLITINIB
     Indication: Graft versus host disease
     Route: 065
  11. PREDSONE TAPER [Concomitant]
     Indication: Graft versus host disease
     Route: 065
     Dates: start: 20220630, end: 20220630

REACTIONS (5)
  - Acute respiratory failure [Recovered/Resolved]
  - Cardiac failure congestive [Unknown]
  - Acute graft versus host disease [Unknown]
  - Diarrhoea [Recovered/Resolved]
  - Intentional product use issue [Unknown]

NARRATIVE: CASE EVENT DATE: 20220710
